FAERS Safety Report 19870728 (Version 5)
Quarter: 2021Q4

REPORT INFORMATION
  Report Type: Report from Study
  Country: None (occurrence: BE)
  Receive Date: 20210923
  Receipt Date: 20211025
  Transmission Date: 20220303
  Serious: Yes (Hospitalization)
  Sender: FDA-Public Use
  Company Number: BE-ABBVIE-21K-013-4089742-00

PATIENT
  Sex: Female

DRUGS (15)
  1. CARBIDOPA\LEVODOPA [Suspect]
     Active Substance: CARBIDOPA\LEVODOPA
     Indication: Parkinson^s disease
     Route: 050
     Dates: start: 20200714
  2. CARBIDOPA\LEVODOPA [Suspect]
     Active Substance: CARBIDOPA\LEVODOPA
     Dosage: MD: 4.0 ML, CD: 2.6 ML/H; REMAINS AT 16 HOURS, ED: 0,8 ML
     Route: 050
     Dates: start: 20210112, end: 20210324
  3. CARBIDOPA\LEVODOPA [Suspect]
     Active Substance: CARBIDOPA\LEVODOPA
     Dosage: MD: 3.5 ML, CD: 2.3 ML/H; REMAINS AT 16 HOURS, ED: 0,8 ML
     Route: 050
     Dates: start: 20210324, end: 20210512
  4. CARBIDOPA\LEVODOPA [Suspect]
     Active Substance: CARBIDOPA\LEVODOPA
     Dosage: CD: 2.2 ML/H; REMAINS AT 16 HOURS
     Route: 050
     Dates: start: 20210512, end: 20210628
  5. CARBIDOPA\LEVODOPA [Suspect]
     Active Substance: CARBIDOPA\LEVODOPA
     Dosage: MD: 3.5 ML, CD: 2.0 ML/H; REMAINS AT 16 HOURS, ED: 0,8 ML
     Route: 050
     Dates: start: 20210628, end: 20210628
  6. CARBIDOPA\LEVODOPA [Suspect]
     Active Substance: CARBIDOPA\LEVODOPA
     Dosage: MD: 3.5 ML, CD: 1.9 ML/H; REMAINS AT 16 HOURS, ED: 0,8 ML
     Route: 050
     Dates: start: 20210628
  7. BENSERAZIDE\LEVODOPA [Concomitant]
     Active Substance: BENSERAZIDE\LEVODOPA
     Indication: Dopaminergic drug therapy
     Dosage: AT 8 AM, 12 PM AND 6 PM
  8. BENSERAZIDE\LEVODOPA [Concomitant]
     Active Substance: BENSERAZIDE\LEVODOPA
     Dosage: AT 10 AM AND 2 PM
  9. BENSERAZIDE\LEVODOPA [Concomitant]
     Active Substance: BENSERAZIDE\LEVODOPA
     Indication: Product used for unknown indication
  10. AMLODIPINE BESYLATE [Concomitant]
     Active Substance: AMLODIPINE BESYLATE
     Indication: Product used for unknown indication
  11. D VITAL FORTE [Concomitant]
     Indication: Product used for unknown indication
  12. EFFEXOR [Concomitant]
     Active Substance: VENLAFAXINE HYDROCHLORIDE
     Indication: Product used for unknown indication
     Dosage: EFFEXOR EXCEL
  13. LASIX [Concomitant]
     Active Substance: FUROSEMIDE
     Indication: Product used for unknown indication
  14. RIVOTRIL [Concomitant]
     Active Substance: CLONAZEPAM
     Indication: Product used for unknown indication
  15. SEDISTRESS SLEEP [Concomitant]
     Indication: Product used for unknown indication

REACTIONS (3)
  - Medical device site haemorrhage [Unknown]
  - Incorrect route of product administration [Not Recovered/Not Resolved]
  - Device dislocation [Recovered/Resolved]
